FAERS Safety Report 26162801 (Version 1)
Quarter: 2025Q4

REPORT INFORMATION
  Report Type: Spontaneous
  Country: US (occurrence: US)
  Receive Date: 20251216
  Receipt Date: 20251216
  Transmission Date: 20260117
  Serious: No
  Sender: CELLTRION
  Company Number: US-CELLTRION INC.-2025US009366

PATIENT

DRUGS (11)
  1. RITUXIMAB [Suspect]
     Active Substance: RITUXIMAB
     Indication: Dermatomyositis
     Dosage: 1000 MG
  2. RITUXIMAB [Suspect]
     Active Substance: RITUXIMAB
     Dosage: 1000 MG
  3. RITUXIMAB [Suspect]
     Active Substance: RITUXIMAB
     Dosage: SINGLE DOSE
  4. METHYLPREDNISOLONE [Suspect]
     Active Substance: METHYLPREDNISOLONE
     Indication: Dermatomyositis
     Dosage: THREE DAYS OF 500 MG
  5. AZATHIOPRINE [Suspect]
     Active Substance: AZATHIOPRINE
     Indication: Dermatomyositis
     Dosage: DAILY
  6. PREDNISONE [Suspect]
     Active Substance: PREDNISONE
     Indication: Muscle atrophy
     Dosage: 60 MG WITH TAPER BY 10 MG EVERY 6 DAYS
  7. PREDNISONE [Suspect]
     Active Substance: PREDNISONE
     Indication: Infection
     Dosage: 10 MG DAILY WAS TAPERED
     Dates: start: 202210
  8. PREDNISONE [Suspect]
     Active Substance: PREDNISONE
     Dosage: 5 MG, DAILY
  9. SULFAMETHOXAZOLE [Concomitant]
     Active Substance: SULFAMETHOXAZOLE
     Indication: Pneumocystis jirovecii pneumonia
  10. SULFAMETHOXAZOLE [Concomitant]
     Active Substance: SULFAMETHOXAZOLE
     Indication: Prophylaxis
  11. TENOFOVIR ALAFENAMIDE [Concomitant]
     Active Substance: TENOFOVIR ALAFENAMIDE
     Indication: Hepatitis B reactivation

REACTIONS (2)
  - Drug effective for unapproved indication [Unknown]
  - Therapy interrupted [Unknown]
